FAERS Safety Report 11282953 (Version 4)
Quarter: 2016Q2

REPORT INFORMATION
  Report Type: Spontaneous
  Country: BR (occurrence: BR)
  Receive Date: 20150720
  Receipt Date: 20160428
  Transmission Date: 20160815
  Serious: Yes (Other)
  Sender: FDA-Public Use
  Company Number: BR-PFIZER INC-2014278948

PATIENT
  Age: 70 Year
  Sex: Female
  Weight: 60 kg

DRUGS (12)
  1. SUTENT [Suspect]
     Active Substance: SUNITINIB MALATE
     Dosage: 50 EVERY OTHER DAY CYCLE 4 X 2
     Route: 048
     Dates: start: 201503
  2. OMEPRAZOLE. [Concomitant]
     Active Substance: OMEPRAZOLE
     Indication: PROPHYLAXIS AGAINST GASTROINTESTINAL ULCER
     Dosage: 1 TABLET IN THE MORNING
  3. BETES [Concomitant]
     Active Substance: GLIMEPIRIDE
     Indication: DIABETES MELLITUS
     Dosage: 1 MG, 1X/DAY
  4. CELEBRA [Concomitant]
     Active Substance: CELECOXIB
  5. SUTENT [Suspect]
     Active Substance: SUNITINIB MALATE
     Indication: METASTATIC RENAL CELL CARCINOMA
     Dosage: 50 MG, CYCLE 4 X 2
     Route: 048
     Dates: start: 20140102
  6. PURAN [Concomitant]
     Active Substance: LEVOTHYROXINE SODIUM
     Indication: THYROID DISORDER
     Dosage: 1 TABLET IN THE MORNING IN FASTING
  7. CLONAZEPAM. [Concomitant]
     Active Substance: CLONAZEPAM
     Indication: SLEEP DISORDER
     Dosage: UNK
  8. DIUBLOK [Concomitant]
     Indication: HYPERTENSION
     Dosage: 25 MG, UNK
  9. DIUBLOK [Concomitant]
     Dosage: 1 TABLET IN THE MORNING
  10. MORPHINE [Concomitant]
     Active Substance: MORPHINE
     Indication: PAIN
     Dosage: ON AVERAGE AT 1 TABLET/DAY
  11. LABIRIN [Concomitant]
     Active Substance: BETAHISTINE
     Indication: LABYRINTHITIS
     Dosage: 1 TABLET IN THE MORNING
  12. SUTENT [Suspect]
     Active Substance: SUNITINIB MALATE
     Dosage: 50 MG, CYCLIC (1X1) AND PAUSE OF 14 DAYS
     Route: 048
     Dates: start: 20140102

REACTIONS (15)
  - Metastatic renal cell carcinoma [Unknown]
  - Disease progression [Unknown]
  - Blindness [Recovering/Resolving]
  - Nausea [Unknown]
  - Blood pressure abnormal [Unknown]
  - Weight decreased [Unknown]
  - Thyroid disorder [Unknown]
  - Decreased appetite [Recovering/Resolving]
  - Pain in extremity [Unknown]
  - Pain [Unknown]
  - Anaemia [Recovered/Resolved]
  - Asthenia [Unknown]
  - Vomiting [Recovering/Resolving]
  - Diarrhoea [Recovering/Resolving]
  - Headache [Recovering/Resolving]

NARRATIVE: CASE EVENT DATE: 2014
